FAERS Safety Report 20481882 (Version 7)
Quarter: 2022Q2

REPORT INFORMATION
  Report Type: Report from Study
  Country: US (occurrence: US)
  Receive Date: 20220216
  Receipt Date: 20220617
  Transmission Date: 20220720
  Serious: Yes (Hospitalization, Other)
  Sender: FDA-Public Use
  Company Number: US-GLAXOSMITHKLINE-US2021157996

PATIENT
  Age: 67 Year
  Sex: Female
  Weight: 55 kg

DRUGS (21)
  1. WELLBUTRIN XL [Suspect]
     Active Substance: BUPROPION HYDROCHLORIDE
     Indication: Product used for unknown indication
     Route: 065
     Dates: end: 202204
  2. NIRAPARIB [Suspect]
     Active Substance: NIRAPARIB
     Indication: Ovarian cancer
     Route: 065
  3. NIRAPARIB [Suspect]
     Active Substance: NIRAPARIB
     Indication: Ovarian epithelial cancer
     Route: 065
  4. NIRAPARIB [Suspect]
     Active Substance: NIRAPARIB
     Indication: Ovarian cancer stage III
     Route: 065
     Dates: end: 20210727
  5. NIRAPARIB [Suspect]
     Active Substance: NIRAPARIB
     Route: 048
     Dates: start: 20210728
  6. NIRAPARIB [Suspect]
     Active Substance: NIRAPARIB
     Route: 065
  7. NIRAPARIB [Suspect]
     Active Substance: NIRAPARIB
     Route: 065
  8. NIRAPARIB [Suspect]
     Active Substance: NIRAPARIB
     Route: 065
     Dates: start: 202201
  9. NIRAPARIB [Suspect]
     Active Substance: NIRAPARIB
     Route: 065
     Dates: start: 20220122
  10. NIRAPARIB [Suspect]
     Active Substance: NIRAPARIB
     Route: 065
  11. NIRAPARIB [Suspect]
     Active Substance: NIRAPARIB
     Route: 065
     Dates: start: 20210730
  12. NIRAPARIB [Suspect]
     Active Substance: NIRAPARIB
     Route: 065
     Dates: start: 20210717
  13. NIRAPARIB [Suspect]
     Active Substance: NIRAPARIB
     Route: 065
     Dates: start: 20210727
  14. NIRAPARIB [Suspect]
     Active Substance: NIRAPARIB
     Route: 065
  15. NIRAPARIB [Suspect]
     Active Substance: NIRAPARIB
     Route: 065
  16. LAMICTAL [Suspect]
     Active Substance: LAMOTRIGINE
     Indication: Product used for unknown indication
     Route: 065
  17. SYNTHROID [Suspect]
     Active Substance: LEVOTHYROXINE SODIUM
     Indication: Product used for unknown indication
     Route: 065
  18. MODERNA COVID-19 VACCINE [Suspect]
     Active Substance: ELASOMERAN
     Indication: COVID-19 prophylaxis
     Route: 065
     Dates: start: 20210814
  19. GLUTATHIONE [Suspect]
     Active Substance: GLUTATHIONE
     Indication: Product used for unknown indication
     Route: 065
     Dates: start: 20210517
  20. ZEJULA [Suspect]
     Active Substance: NIRAPARIB
     Indication: Product used for unknown indication
     Route: 065
     Dates: start: 202106
  21. MACROBID [Concomitant]
     Active Substance: NITROFURANTOIN\NITROFURANTOIN MONOHYDRATE
     Indication: Urinary tract infection
     Dosage: FOR A COUPLE OF DAYS

REACTIONS (71)
  - Platelet count decreased [Recovering/Resolving]
  - Mastectomy [Recovered/Resolved]
  - Renal impairment [Recovering/Resolving]
  - Squamous cell carcinoma of skin [Unknown]
  - Syncope [Recovered/Resolved]
  - Hallucination [Unknown]
  - Paranoia [Unknown]
  - Abdominal tenderness [Recovering/Resolving]
  - Fatigue [Not Recovered/Not Resolved]
  - Skin discolouration [Recovered/Resolved]
  - Ill-defined disorder [Unknown]
  - Red blood cell count decreased [Not Recovered/Not Resolved]
  - Peripheral swelling [Unknown]
  - Gait disturbance [Unknown]
  - Actinic keratosis [Unknown]
  - Papule [Recovering/Resolving]
  - Decreased activity [Unknown]
  - Fluid intake reduced [Unknown]
  - Heart rate decreased [Recovering/Resolving]
  - White blood cell count decreased [Recovering/Resolving]
  - Renal disorder [Unknown]
  - Haemoglobin decreased [Unknown]
  - Condition aggravated [Unknown]
  - Glomerular filtration rate decreased [Not Recovered/Not Resolved]
  - Acne [Recovering/Resolving]
  - Fall [Unknown]
  - Feeling abnormal [Unknown]
  - Oral pain [Unknown]
  - Heart rate increased [Recovered/Resolved]
  - Sedation [Recovering/Resolving]
  - Contusion [Not Recovered/Not Resolved]
  - Hypoaesthesia [Unknown]
  - Abdominal distension [Not Recovered/Not Resolved]
  - Peripheral coldness [Unknown]
  - Panic attack [Unknown]
  - Stomatitis [Recovered/Resolved]
  - Oedema peripheral [Unknown]
  - Pain [Unknown]
  - Somnolence [Recovering/Resolving]
  - Vision blurred [Not Recovered/Not Resolved]
  - Depression [Not Recovered/Not Resolved]
  - Dyspnoea [Unknown]
  - Weight decreased [Unknown]
  - Taste disorder [Unknown]
  - Agitation [Not Recovered/Not Resolved]
  - Abdominal pain upper [Recovering/Resolving]
  - Constipation [Not Recovered/Not Resolved]
  - Insomnia [Not Recovered/Not Resolved]
  - Anxiety [Not Recovered/Not Resolved]
  - Abdominal pain [Not Recovered/Not Resolved]
  - Blood pressure increased [Not Recovered/Not Resolved]
  - Nausea [Recovered/Resolved]
  - Asthenia [Unknown]
  - Disturbance in attention [Unknown]
  - Malaise [Unknown]
  - Adverse drug reaction [Not Recovered/Not Resolved]
  - Breast pain [Unknown]
  - Breast swelling [Unknown]
  - Breast disorder [Unknown]
  - Rash [Unknown]
  - Lymphadenopathy [Unknown]
  - Lymph node pain [Unknown]
  - Infection [Unknown]
  - Scar [Unknown]
  - Localised oedema [Unknown]
  - Heart rate decreased [Unknown]
  - Blood urea increased [Unknown]
  - Product dose omission in error [Unknown]
  - Anaemia [Not Recovered/Not Resolved]
  - Thyroid disorder [Not Recovered/Not Resolved]
  - Loss of personal independence in daily activities [Unknown]

NARRATIVE: CASE EVENT DATE: 20210601
